FAERS Safety Report 7627778-8 (Version None)
Quarter: 2011Q3

REPORT INFORMATION
  Report Type: 
  Country: None (occurrence: None)
  Receive Date: 20110721
  Receipt Date: 20110711
  Transmission Date: 20111222
  Serious: Yes (Hospitalization)
  Sender: FDA-Public Use
  Company Number: PHHY2011US57657

PATIENT
  Age: 34 Year
  Sex: Female
  Weight: 119.73 kg

DRUGS (5)
  1. XANAX [Concomitant]
     Dosage: 0.5 MG, TID
  2. HYDROCHLOROTHIAZIDE [Concomitant]
     Indication: HYPERTENSION
     Dosage: 25 MG, DAILY
     Route: 048
  3. ALLOPURINOL [Concomitant]
     Dosage: 100 MG, BID
  4. TASIGNA [Suspect]
     Indication: CHRONIC MYELOID LEUKAEMIA
     Dosage: 300 MG, BID
     Route: 048
     Dates: start: 20110601, end: 20110603
  5. PROTONIX [Concomitant]
     Dosage: 40 MG, DAILY
     Route: 048

REACTIONS (6)
  - RHABDOMYOLYSIS [None]
  - ANOGENITAL WARTS [None]
  - HEMIPARESIS [None]
  - CYANOSIS [None]
  - GENITAL ULCERATION [None]
  - RENAL FAILURE [None]
